FAERS Safety Report 16297273 (Version 2)
Quarter: 2019Q2

REPORT INFORMATION
  Report Type: Spontaneous
  Country: BR (occurrence: BR)
  Receive Date: 20190510
  Receipt Date: 20190625
  Transmission Date: 20190711
  Serious: Yes (Death, Other)
  Sender: FDA-Public Use
  Company Number: BR-SA-2019SA126705

PATIENT
  Sex: Female

DRUGS (1)
  1. ALDURAZYME [Suspect]
     Active Substance: LARONIDASE
     Indication: MUCOPOLYSACCHARIDOSIS I
     Dosage: 2.9 MG/5 ML, UNK
     Route: 041

REACTIONS (2)
  - Respiratory failure [Fatal]
  - Upper respiratory tract infection [Fatal]

NARRATIVE: CASE EVENT DATE: 20190506
